FAERS Safety Report 12369212 (Version 3)
Quarter: 2016Q3

REPORT INFORMATION
  Report Type: Report from Study
  Country: AR (occurrence: AR)
  Receive Date: 20160513
  Receipt Date: 20160728
  Transmission Date: 20161109
  Serious: Yes (Other)
  Sender: FDA-Public Use
  Company Number: PHHY2016AR063963

PATIENT
  Sex: Female

DRUGS (2)
  1. DIOVAN [Suspect]
     Active Substance: VALSARTAN
     Indication: STRESS
     Dosage: 0.5 DF (80 MG), BID (HALF IN THE MORNING AND HALF AT NIGHT)
     Route: 065
     Dates: start: 201507
  2. DIOVAN [Suspect]
     Active Substance: VALSARTAN
     Indication: HYPERTENSION
     Dosage: 2 DF, QD
     Route: 065

REACTIONS (6)
  - Wrong technique in product usage process [Unknown]
  - Drug prescribing error [Unknown]
  - Cardiac valve disease [Unknown]
  - Blood pressure increased [Unknown]
  - Hypotension [Unknown]
  - Underdose [Unknown]

NARRATIVE: CASE EVENT DATE: 2013
